FAERS Safety Report 5515866-1 (Version None)
Quarter: 2007Q4

REPORT INFORMATION
  Report Type: 
  Country: None (occurrence: None)
  Receive Date: 20071109
  Receipt Date: 20071026
  Transmission Date: 20080405
  Serious: Yes (Life-Threatening, Other)
  Sender: FDA-Public Use
  Company Number: DSA_30815_2007

PATIENT
  Age: 68 Year
  Sex: Male

DRUGS (11)
  1. ENALAPRIL MALEATE [Suspect]
     Indication: DRUG USE FOR UNKNOWN INDICATION
     Dosage: (5 MG QD ORAL)
     Route: 048
     Dates: start: 20070819
  2. CLEXANE                                  (CLEXANE-ENOXAPARIN SODIUM) [Suspect]
     Indication: DRUG USE FOR UNKNOWN INDICATION
     Dosage: (80 MG QD SUBCUTANEOUS)
     Route: 058
     Dates: start: 20070824
  3. BISOPROLOL FUMARATE [Suspect]
     Indication: DRUG USE FOR UNKNOWN INDICATION
     Dosage: (25 MG QD ORAL)
     Route: 048
     Dates: start: 20070823
  4. VENTOLIN [Suspect]
     Indication: LARYNGEAL NEOPLASM
     Dosage: (2 ML TID 0.5% SOLUTION NASAL)
     Route: 055
     Dates: start: 20070824, end: 20070824
  5. CIPROFLOXACIN [Suspect]
     Indication: DRUG USE FOR UNKNOWN INDICATION
     Dosage: (400 MG BID INTRAVENOUS (NOT OTHERWISE SPECIFIED))
     Route: 042
     Dates: start: 20070819
  6. ATROVENT [Suspect]
     Indication: DRUG USE FOR UNKNOWN INDICATION
     Dosage: (500 UG TID)
     Route: 055
     Dates: start: 20070824
  7. ACETAMINOPHEN [Concomitant]
  8. FLUMIL [Concomitant]
  9. FORTAM [Concomitant]
  10. LORAZEPAM [Concomitant]
  11. PRIMPERAN INJ [Concomitant]

REACTIONS (2)
  - ATRIAL FIBRILLATION [None]
  - DRUG INTERACTION [None]
